FAERS Safety Report 5505322-9 (Version None)
Quarter: 2007Q4

REPORT INFORMATION
  Report Type: 
  Country: None (occurrence: None)
  Receive Date: 20071102
  Receipt Date: 20071025
  Transmission Date: 20080405
  Serious: Yes (Other)
  Sender: FDA-Public Use
  Company Number: B0492091A

PATIENT
  Age: 66 Year
  Sex: Male

DRUGS (3)
  1. ELONTRIL [Suspect]
     Route: 048
     Dates: start: 20070801
  2. TRANKIMAZIN [Concomitant]
  3. UNSPECIFIED MEDICATION [Concomitant]

REACTIONS (2)
  - NARCOLEPSY [None]
  - SOMNOLENCE [None]
